FAERS Safety Report 7466401-2 (Version None)
Quarter: 2011Q2

REPORT INFORMATION
  Report Type: 
  Country: None (occurrence: None)
  Receive Date: 20110509
  Receipt Date: 20110503
  Transmission Date: 20111010
  Serious: No
  Sender: FDA-Public Use
  Company Number: US-PFIZER INC-2011015754

PATIENT
  Sex: Female
  Weight: 68 kg

DRUGS (10)
  1. NUMOISYN [Concomitant]
     Indication: SJOGREN'S SYNDROME
  2. OMEPRAZOLE [Concomitant]
     Indication: GASTROOESOPHAGEAL REFLUX DISEASE
     Dosage: UNK
  3. TRAVATAN [Concomitant]
     Indication: GLAUCOMA
     Dosage: UNK
  4. ASPIRIN [Concomitant]
     Dosage: UNK
  5. COVERA-HS [Suspect]
     Indication: BLOOD PRESSURE
     Dosage: 180 MG, 1X/DAY
     Route: 048
     Dates: start: 20101201
  6. COVERA-HS [Suspect]
     Indication: ARRHYTHMIA
     Dosage: 180 MG, 1X/DAY
     Route: 048
     Dates: start: 20110105
  7. SYNTHROID [Concomitant]
     Indication: HYPOTHYROIDISM
     Dosage: UNK
  8. PLAQUENIL [Concomitant]
     Indication: ARTHRITIS
     Dosage: 200 MG, 1X/DAY
  9. RESTASIS [Concomitant]
     Indication: GLAUCOMA
     Dosage: UNK
  10. NUMOISYN [Concomitant]
     Indication: DRY MOUTH
     Dosage: UNK

REACTIONS (2)
  - MEDICATION RESIDUE [None]
  - CONSTIPATION [None]
